FAERS Safety Report 21187332 (Version 1)
Quarter: 2022Q3

REPORT INFORMATION
  Report Type: Spontaneous
  Country: US (occurrence: US)
  Receive Date: 20220808
  Receipt Date: 20220808
  Transmission Date: 20221027
  Serious: No
  Sender: FDA-Public Use
  Company Number: US-009507513-2207USA003865

PATIENT
  Sex: Male
  Weight: 144.5 kg

DRUGS (9)
  1. JANUVIA [Suspect]
     Active Substance: SITAGLIPTIN PHOSPHATE
     Indication: Diabetes mellitus
     Dosage: 1 TABLET, QD
     Route: 048
     Dates: start: 20210818, end: 20220617
  2. JANUVIA [Suspect]
     Active Substance: SITAGLIPTIN PHOSPHATE
     Dosage: 1 TABLET, QD
     Route: 048
     Dates: start: 20220718
  3. NOVOLIN R [Concomitant]
     Active Substance: INSULIN HUMAN
     Dosage: UP TO 12 UNITS, 3 TIMES A DAY
     Route: 058
  4. TERBINAFINE [Concomitant]
     Active Substance: TERBINAFINE
     Dosage: 1 TABLET, QD
     Route: 048
  5. LEVEMIR [Concomitant]
     Active Substance: INSULIN DETEMIR
     Dosage: 20 UNITS AM, AND 30 UNITS EVERY EVENING FOR T2DM
     Route: 058
  6. METFORMIN [Concomitant]
     Active Substance: METFORMIN HYDROCHLORIDE
     Dosage: 1 TABLET, BID
     Route: 048
  7. VITAMIN D2 [Concomitant]
     Active Substance: ERGOCALCIFEROL
     Dosage: 1 CAPSULE WEEKLY
     Route: 048
  8. LISINOPRIL [Concomitant]
     Active Substance: LISINOPRIL
     Dosage: 1 TABLET, QD
     Route: 048
  9. LOVASTATIN [Concomitant]
     Active Substance: LOVASTATIN
     Dosage: 1 TABLET, QD
     Route: 048

REACTIONS (3)
  - Product use issue [Unknown]
  - Product dose omission issue [Unknown]
  - No adverse event [Unknown]

NARRATIVE: CASE EVENT DATE: 20220101
